FAERS Safety Report 7550146-4 (Version None)
Quarter: 2011Q2

REPORT INFORMATION
  Report Type: 
  Country: None (occurrence: None)
  Receive Date: 20110615
  Receipt Date: 20110607
  Transmission Date: 20111010
  Serious: Yes (Hospitalization)
  Sender: FDA-Public Use
  Company Number: US-GENENTECH-317789

PATIENT
  Sex: Male
  Weight: 63.039 kg

DRUGS (2)
  1. PREDNISONE [Concomitant]
     Indication: PRODUCT USED FOR UNKNOWN INDICATION
  2. RITUXAN [Suspect]
     Indication: WEGENER'S GRANULOMATOSIS
     Dosage: 700 MG, Q4W
     Route: 042
     Dates: start: 20110215

REACTIONS (1)
  - PSYCHOTIC DISORDER [None]
